FAERS Safety Report 5052790-5 (Version None)
Quarter: 2006Q3

REPORT INFORMATION
  Report Type: 
  Country: None (occurrence: None)
  Receive Date: 20060712
  Receipt Date: 20060712
  Transmission Date: 20061208
  Serious: Yes (Hospitalization)
  Sender: FDA-Public Use
  Company Number: None

PATIENT
  Age: 64 Year
  Sex: Male
  Weight: 59.4 kg

DRUGS (1)
  1. PIPERACILLIN AND TAZOBACTAM [Suspect]
     Indication: WOUND INFECTION
     Dosage: 13.5G, 3.375GQ6, INTRAVEN
     Route: 042
     Dates: start: 20060619, end: 20060626

REACTIONS (1)
  - RASH [None]
